FAERS Safety Report 4316020-1 (Version None)
Quarter: 2004Q1

REPORT INFORMATION
  Report Type: 
  Country: None (occurrence: None)
  Receive Date: 20040311
  Receipt Date: 20040302
  Transmission Date: 20041129
  Serious: Yes (Other)
  Sender: FDA-Public Use
  Company Number: WAES 0403AUS00256

PATIENT
  Age: 38 Year
  Sex: Female

DRUGS (1)
  1. INDOCIN [Suspect]

REACTIONS (1)
  - HYPERTENSIVE CRISIS [None]
